FAERS Safety Report 6676335-9 (Version None)
Quarter: 2010Q2

REPORT INFORMATION
  Report Type: 
  Country: None (occurrence: None)
  Receive Date: 20100412
  Receipt Date: 20100408
  Transmission Date: 20101027
  Serious: Yes (Other)
  Sender: FDA-Public Use
  Company Number: GB-EISAI INC.-E2080-00287-SPO-GB

PATIENT
  Age: 14 Year
  Sex: Female

DRUGS (3)
  1. INOVELON [Suspect]
     Indication: DRUG USE FOR UNKNOWN INDICATION
     Dosage: UNKNOWN
     Route: 048
     Dates: start: 20091201
  2. TOPIRAMATE [Concomitant]
  3. CLOBAZAM [Concomitant]

REACTIONS (1)
  - PANCREATITIS [None]
